FAERS Safety Report 13450576 (Version 1)
Quarter: 2017Q2

REPORT INFORMATION
  Report Type: Spontaneous
  Country: US (occurrence: US)
  Receive Date: 20170417
  Receipt Date: 20170417
  Transmission Date: 20170830
  Serious: Yes (Hospitalization)
  Sender: FDA-Public Use
  Company Number: None

PATIENT
  Age: 77 Year
  Sex: Male
  Weight: 92 kg

DRUGS (4)
  1. ALLOPURINOL. [Suspect]
     Active Substance: ALLOPURINOL
     Indication: GOUT
     Route: 048
     Dates: start: 20160623, end: 20161004
  2. IMATINIB [Suspect]
     Active Substance: IMATINIB
     Indication: CHRONIC MYELOID LEUKAEMIA
     Route: 048
     Dates: start: 20160623, end: 20161004
  3. IMATINIB [Suspect]
     Active Substance: IMATINIB
     Indication: PULMONARY HYPERTENSION
     Route: 048
     Dates: start: 20160623, end: 20161004
  4. ALLOPURINOL. [Suspect]
     Active Substance: ALLOPURINOL
     Indication: PROPHYLAXIS
     Route: 048
     Dates: start: 20160623, end: 20161004

REACTIONS (4)
  - Erythema multiforme [None]
  - Rash pruritic [None]
  - Lichenoid keratosis [None]
  - Urticaria [None]

NARRATIVE: CASE EVENT DATE: 20161004
